FAERS Safety Report 24167301 (Version 3)
Quarter: 2024Q3

REPORT INFORMATION
  Report Type: Spontaneous
  Country: DK (occurrence: DK)
  Receive Date: 20240802
  Receipt Date: 20240904
  Transmission Date: 20241017
  Serious: Yes (Death, Hospitalization)
  Sender: BAYER
  Company Number: DK-BAYER-2024A112084

PATIENT
  Age: 68 Year

DRUGS (2)
  1. XOFIGO [Suspect]
     Active Substance: RADIUM RA-223 DICHLORIDE
     Dosage: UNK
     Dates: start: 20240522, end: 20240522
  2. XOFIGO [Suspect]
     Active Substance: RADIUM RA-223 DICHLORIDE
     Dosage: UNK
     Dates: start: 20240619, end: 20240619

REACTIONS (3)
  - Death [Fatal]
  - Gastrointestinal haemorrhage [None]
  - Pneumonia [None]

NARRATIVE: CASE EVENT DATE: 20240713
